FAERS Safety Report 13489832 (Version 9)
Quarter: 2018Q2

REPORT INFORMATION
  Report Type: Spontaneous
  Country: US (occurrence: US)
  Receive Date: 20170426
  Receipt Date: 20180516
  Transmission Date: 20180711
  Serious: Yes (Other)
  Sender: FDA-Public Use
  Company Number: US-IMPAX LABORATORIES, INC-2017-IPXL-01132

PATIENT
  Age: 66 Year
  Sex: Female
  Weight: 69 kg

DRUGS (15)
  1. RYTARY [Suspect]
     Active Substance: CARBIDOPA\LEVODOPA
     Indication: PARKINSON^S DISEASE
     Dosage: 48.75/195 MG, 4 CAPSULE, 3 /DAY
     Route: 048
     Dates: start: 20161101
  2. RYTARY [Suspect]
     Active Substance: CARBIDOPA\LEVODOPA
     Dosage: 48.75/195 MG, 4 CAPSULES, THEN 5 HOURS LATER 4 CAPSULES, AND THEN 5 HOURS LATER 3 CAPSULES
     Route: 048
     Dates: start: 20170412
  3. CARBIDOPA-LEVODOPA ER [Suspect]
     Active Substance: CARBIDOPA\LEVODOPA
     Dosage: 50/200 MG
     Route: 065
  4. RYTARY [Suspect]
     Active Substance: CARBIDOPA\LEVODOPA
     Dosage: 48.75/195 MG, 3 CAPSULE, 4 /DAY
     Route: 048
  5. METHOTREXATE. [Concomitant]
     Active Substance: METHOTREXATE
     Indication: IMMUNOSUPPRESSION
     Dosage: 2.5 MG, 6 TABLET, 1 /WEEK
     Route: 048
     Dates: start: 200701
  6. RYTARY [Suspect]
     Active Substance: CARBIDOPA\LEVODOPA
     Dosage: 48.75/195 MG, 9 CAPSULES A DAY
     Route: 048
  7. RYTARY [Suspect]
     Active Substance: CARBIDOPA\LEVODOPA
     Dosage: 48.75/195 MG, 2 CAPSULE AT 8 AM, 2 AT NOON, 2 AT 4 PM AND 3 AT 8 PM
     Route: 048
  8. RYTARY [Suspect]
     Active Substance: CARBIDOPA\LEVODOPA
     Dosage: 48.75/195 MG (TAKES NINE CAPS A DAY EVERY FOUR HOURS)
     Route: 048
  9. FOLIC ACID. [Concomitant]
     Active Substance: FOLIC ACID
     Indication: PRODUCT USED FOR UNKNOWN INDICATION
     Dosage: 1 MG, 1 TABLET, DAILY
     Route: 048
  10. HUMIRA [Concomitant]
     Active Substance: ADALIMUMAB
     Indication: SPONDYLITIS
     Dosage: 40 MG, ONE SHOT,  EVERY OTHER WEEK
     Route: 065
     Dates: start: 200701
  11. FLUORIDE [Concomitant]
     Active Substance: SODIUM FLUORIDE
     Indication: PRODUCT USED FOR UNKNOWN INDICATION
     Dosage: UNK
     Route: 065
  12. LEFLUNOMIDE. [Concomitant]
     Active Substance: LEFLUNOMIDE
     Indication: SPONDYLITIS
     Dosage: 10 MG, 1 TABLET,  DAILY
     Route: 048
  13. RYTARY [Suspect]
     Active Substance: CARBIDOPA\LEVODOPA
     Dosage: 48.75/195 MG, 4 CAPSULES, THEN 5 HOURS LATER 3 CAPSULES, AND THEN 5 HOURS LATER 3 CAPSULES
     Route: 048
     Dates: start: 20161117
  14. ASPIRIN. [Concomitant]
     Active Substance: ASPIRIN
     Indication: PRODUCT USED FOR UNKNOWN INDICATION
     Dosage: 81 MG, UNK
     Route: 065
     Dates: start: 201704
  15. CARBIDOPA-LEVODOPA ER [Suspect]
     Active Substance: CARBIDOPA\LEVODOPA
     Indication: PARKINSON^S DISEASE
     Dosage: FIVE PILLS A DAY, EVERY 3 HOURS APART, UNK
     Route: 065

REACTIONS (25)
  - Emotional disorder [Recovered/Resolved]
  - Depression [Unknown]
  - Dyspnoea [Recovering/Resolving]
  - Dizziness [Recovered/Resolved]
  - Nausea [Recovered/Resolved]
  - Seizure [Recovered/Resolved]
  - Stress [Unknown]
  - Feeling drunk [Recovered/Resolved]
  - Platelet count decreased [Unknown]
  - Anxiety [Unknown]
  - Drug effect delayed [Unknown]
  - Gait disturbance [Recovered/Resolved]
  - Dry mouth [Not Recovered/Not Resolved]
  - Insomnia [Not Recovered/Not Resolved]
  - Neutrophil count abnormal [Unknown]
  - Memory impairment [Not Recovered/Not Resolved]
  - Heart rate increased [Unknown]
  - Tremor [Not Recovered/Not Resolved]
  - Fatigue [Not Recovered/Not Resolved]
  - Weight decreased [Recovered/Resolved]
  - Somnolence [Unknown]
  - Mood swings [Recovered/Resolved]
  - Constipation [Not Recovered/Not Resolved]
  - Therapeutic response shortened [Not Recovered/Not Resolved]
  - Dysarthria [Recovered/Resolved]

NARRATIVE: CASE EVENT DATE: 201611
